FAERS Safety Report 7734191 (Version 9)
Quarter: 2013Q4

REPORT INFORMATION
  Report Type: Report from Study
  Country: US (occurrence: US)
  Receive Date: 20101223
  Receipt Date: 20131021
  Transmission Date: 20140711
  Serious: Yes (Hospitalization)
  Sender: FDA-Public Use
  Company Number: US-ROCHE-738084

PATIENT
  Age: 60 Year
  Sex: Female
  Weight: 68 kg

DRUGS (16)
  1. TRASTUZUMAB [Suspect]
     Indication: BREAST CANCER
     Dosage: LOADING DOSE
     Route: 042
  2. TRASTUZUMAB [Suspect]
     Dosage: FORM: VIAL, DOSE LEVEL : 6 MG/KG, LAST DOSE PRIOR TO SAE ON 29 NOV 2010, DELAY/HOLD: 29 NOV 2010.
     Route: 042
     Dates: start: 20100816, end: 20110328
  3. BEVACIZUMAB [Suspect]
     Indication: BREAST CANCER
     Dosage: DOSE LEVEL: 15MG/KG. LAST DOSE PRIOR TO SAE: 29/NOV/2010. DELAY/HOLD: 29/NOV/2010
     Route: 042
     Dates: start: 20100816, end: 20110328
  4. DOCETAXEL [Suspect]
     Indication: BREAST CANCER
     Dosage: FORM: VIAL, DOSE LEVEL : 60 MG/M2, LAST DOSE PRIOR TO SAE ON 29 NOV  2010
     Route: 042
     Dates: start: 20100816
  5. CARBOPLATIN [Suspect]
     Indication: BREAST CANCER
     Dosage: FORM: VIAL, DOSE LEVEL : 6 AUC, LAST DOSE PRIOR TO SAE ON 29 OCT 2010
     Route: 042
     Dates: start: 20100816
  6. OMEPRAZOLE [Concomitant]
     Route: 065
  7. TRAZODONE [Concomitant]
     Route: 065
  8. ALLEGRA [Concomitant]
     Route: 065
  9. FERROUS SULPHATE [Concomitant]
     Route: 065
  10. VITAMIN B12 [Concomitant]
     Route: 065
  11. FISH OIL [Concomitant]
     Route: 065
  12. DECADRON [Concomitant]
     Dosage: DRUG: DECADRON 1 TAB860X 3 DAYS
     Route: 065
     Dates: start: 20101017, end: 20101020
  13. ZOFRAN [Concomitant]
     Route: 065
  14. COMPAZINE [Concomitant]
     Route: 065
  15. AMLODIPINE [Concomitant]
     Route: 065
  16. PEGFILGRASTIM [Concomitant]
     Route: 065
     Dates: start: 20101110, end: 20101110

REACTIONS (5)
  - Nausea [Recovered/Resolved]
  - Vomiting [Recovered/Resolved]
  - Febrile neutropenia [Recovered/Resolved]
  - Dehydration [Recovered/Resolved]
  - Neutropenia [Recovered/Resolved]
